FAERS Safety Report 8236890-4 (Version None)
Quarter: 2012Q1

REPORT INFORMATION
  Report Type: 
  Country: None (occurrence: None)
  Receive Date: 20120327
  Receipt Date: 20110606
  Transmission Date: 20120608
  Serious: No
  Sender: FDA-Public Use
  Company Number: US-GLAXOSMITHKLINE-A0930383A

PATIENT
  Age: 55 Year
  Sex: Male

DRUGS (2)
  1. LUXIQ [Suspect]
     Indication: PRURITUS
     Dosage: 1APP TWICE PER DAY
     Route: 061
     Dates: start: 20090101
  2. ANTI-CHOLESTEROL MEDICATION [Concomitant]

REACTIONS (2)
  - DRUG ADMINISTRATION ERROR [None]
  - ACCIDENTAL EXPOSURE [None]
